FAERS Safety Report 12081567 (Version 1)
Quarter: 2016Q1

REPORT INFORMATION
  Report Type: Spontaneous
  Country: IT (occurrence: IT)
  Receive Date: 20160216
  Receipt Date: 20160216
  Transmission Date: 20160526
  Serious: Yes (Hospitalization)
  Sender: FDA-Public Use
  Company Number: IT-PFIZER INC-2015276628

PATIENT
  Age: 54 Year
  Sex: Female

DRUGS (4)
  1. ENALAPRIL ALMUS [Concomitant]
     Indication: HYPERTENSION
     Dosage: 1 DF, UNK
     Route: 048
     Dates: start: 20140101, end: 20150703
  2. TAVOR (LORAZEPAM) [Suspect]
     Active Substance: LORAZEPAM
     Indication: ANXIETY
     Dosage: 40 DF, SINGLE
     Route: 048
     Dates: start: 20150703
  3. XANAX [Suspect]
     Active Substance: ALPRAZOLAM
     Indication: ANXIETY
     Dosage: 40 DF, SINGLE
     Route: 048
     Dates: start: 20150703
  4. LYRICA [Suspect]
     Active Substance: PREGABALIN
     Dosage: 1 DF, UNK
     Route: 048
     Dates: start: 20150703, end: 20150703

REACTIONS (4)
  - Overdose [Recovered/Resolved]
  - Intentional self-injury [Unknown]
  - Sopor [Recovered/Resolved]
  - Emotional disorder [Recovered/Resolved]

NARRATIVE: CASE EVENT DATE: 20150703
